FAERS Safety Report 15435105 (Version 1)
Quarter: 2018Q4

REPORT INFORMATION
  Report Type: Spontaneous
  Country: US (occurrence: US)
  Receive Date: 20180927
  Receipt Date: 20180927
  Transmission Date: 20190204
  Serious: No
  Sender: FDA-Public Use
  Company Number: US-INDIVIOR LIMITED-INDV-111895-2018

PATIENT
  Age: 32 Year
  Sex: Male

DRUGS (3)
  1. SUBLOCADE [Suspect]
     Active Substance: BUPRENORPHINE
     Indication: DRUG USE DISORDER
     Dosage: 300 MG, QMO
     Route: 058
     Dates: start: 20180524, end: 20180524
  2. SUBOXONE [Suspect]
     Active Substance: BUPRENORPHINE HYDROCHLORIDE\NALOXONE HYDROCHLORIDE
     Dosage: CUTTING AND TAKING 1/2 FILM
     Route: 060
     Dates: start: 20180525
  3. SUBOXONE [Suspect]
     Active Substance: BUPRENORPHINE HYDROCHLORIDE\NALOXONE HYDROCHLORIDE
     Indication: PRODUCT USED FOR UNKNOWN INDICATION
     Dosage: 24MG, DAILY
     Route: 060
     Dates: start: 2009

REACTIONS (6)
  - Drug withdrawal syndrome [Not Recovered/Not Resolved]
  - Abdominal pain [Unknown]
  - Inappropriate schedule of product administration [Recovered/Resolved]
  - Wrong technique in product usage process [Not Recovered/Not Resolved]
  - Intentional product use issue [Not Recovered/Not Resolved]
  - Drug dependence [Recovered/Resolved]

NARRATIVE: CASE EVENT DATE: 201709
